FAERS Safety Report 7048290-3 (Version None)
Quarter: 2010Q4

REPORT INFORMATION
  Report Type: 
  Country: None (occurrence: None)
  Receive Date: 20101015
  Receipt Date: 20101006
  Transmission Date: 20110411
  Serious: Yes (Hospitalization)
  Sender: FDA-Public Use
  Company Number: US-US-EMD SERONO, INC.-7000456

PATIENT
  Sex: Male
  Weight: 97 kg

DRUGS (8)
  1. REBIF [Suspect]
     Indication: MULTIPLE SCLEROSIS
     Route: 058
     Dates: start: 20080731
  2. CYCLOBENZAPRINE [Concomitant]
     Indication: MUSCLE SPASMS
  3. GABAPENTIN [Concomitant]
     Indication: PAIN IN EXTREMITY
  4. MECLIZINE [Concomitant]
     Indication: DIZZINESS
  5. MECLIZINE [Concomitant]
     Indication: BALANCE DISORDER
  6. ZOLOFT [Concomitant]
     Indication: DEPRESSION
     Dates: start: 20100301
  7. KLONOPIN [Concomitant]
     Indication: ANXIETY
     Dates: start: 20100301
  8. BLOOD THINNER [Concomitant]
     Indication: THROMBOSIS

REACTIONS (3)
  - MULTIPLE SCLEROSIS RELAPSE [None]
  - NEPHROLITHIASIS [None]
  - URINARY TRACT INFECTION [None]
